FAERS Safety Report 9885258 (Version 1)
Quarter: 2014Q1

REPORT INFORMATION
  Report Type: Spontaneous
  Country: US (occurrence: US)
  Receive Date: 20140210
  Receipt Date: 20140210
  Transmission Date: 20141002
  Serious: No
  Sender: FDA-Public Use
  Company Number: US-PFIZER INC-2014034365

PATIENT
  Age: 63 Year
  Sex: Female

DRUGS (5)
  1. GLUCOTROL [Suspect]
     Dosage: 10 MG, 2X/DAY
  2. NORVASC [Suspect]
     Dosage: 5 MG, 1 AM
  3. LISINOPRIL [Suspect]
     Dosage: UNK
  4. METFORMIN HCL [Suspect]
     Dosage: UNK
  5. CRESTOR [Suspect]
     Dosage: UNK

REACTIONS (1)
  - Drug hypersensitivity [Unknown]
